FAERS Safety Report 15142606 (Version 1)
Quarter: 2018Q3

REPORT INFORMATION
  Report Type: Spontaneous
  Country: US (occurrence: US)
  Receive Date: 20180713
  Receipt Date: 20180713
  Transmission Date: 20181010
  Serious: Yes (Other)
  Sender: FDA-Public Use
  Company Number: US-GLAXOSMITHKLINE-US2018124017

PATIENT
  Age: 43 Year
  Sex: Female

DRUGS (1)
  1. NUCALA [Suspect]
     Active Substance: MEPOLIZUMAB
     Indication: PRODUCT USED FOR UNKNOWN INDICATION
     Dosage: UNK UNK, SINGLE
     Route: 042
     Dates: start: 20170904, end: 20170904

REACTIONS (9)
  - Wheezing [Recovered/Resolved]
  - Micturition disorder [Recovered/Resolved]
  - Eye disorder [Recovered/Resolved]
  - Peripheral swelling [Recovered/Resolved]
  - Body temperature fluctuation [Recovered/Resolved]
  - Respiration abnormal [Recovered/Resolved]
  - Anaphylactic reaction [Recovered/Resolved]
  - Urticaria [Recovered/Resolved]
  - Hypoaesthesia [Recovered/Resolved]

NARRATIVE: CASE EVENT DATE: 201709
